FAERS Safety Report 13522626 (Version 1)
Quarter: 2017Q2

REPORT INFORMATION
  Report Type: Spontaneous
  Country: US (occurrence: US)
  Receive Date: 20170508
  Receipt Date: 20170508
  Transmission Date: 20170830
  Serious: Yes (Hospitalization, Other)
  Sender: FDA-Public Use
  Company Number: US-SMITH AND NEPHEW, INC-2017SMT00260

PATIENT
  Age: 66 Year
  Sex: Male
  Weight: 119.27 kg

DRUGS (4)
  1. COLLAGENASE SANTYL [Suspect]
     Active Substance: COLLAGENASE CLOSTRIDIUM HISTOLYTICUM
     Dosage: UNK, 1X/DAY ON THE RIGHT FOOT WOUND
     Dates: start: 201704
  2. COLLAGENASE SANTYL [Suspect]
     Active Substance: COLLAGENASE CLOSTRIDIUM HISTOLYTICUM
     Indication: DIABETIC FOOT
     Dosage: UNK UNK, 1X/DAY ON THE RIGHT FOOT WOUND
     Route: 061
     Dates: start: 201704, end: 20170416
  3. REGRANEX [Suspect]
     Active Substance: BECAPLERMIN
     Indication: DIABETIC FOOT
     Dosage: UNK UNK, 1X/DAY FOR 12 HOURS ON AND 12 HOURS OFF TO THE WOUND ON THE BOTTOM OF THE LEFT BIG TOE
     Route: 061
     Dates: start: 201702, end: 20170416
  4. REGRANEX [Suspect]
     Active Substance: BECAPLERMIN
     Dosage: UNK UNK, 1X/DAY FOR 12 HOURS ON AND 12 HOURS OFF TO THE WOUND ON THE BOTTOM OF THE LEFT BIG TOE
     Route: 061
     Dates: start: 201704

REACTIONS (3)
  - Cellulitis [Not Recovered/Not Resolved]
  - Peripheral vascular disorder [Recovering/Resolving]
  - Wound complication [Not Recovered/Not Resolved]

NARRATIVE: CASE EVENT DATE: 201704
